FAERS Safety Report 8165410-8 (Version None)
Quarter: 2012Q1

REPORT INFORMATION
  Report Type: 
  Country: None (occurrence: None)
  Receive Date: 20120103
  Receipt Date: 20111025
  Transmission Date: 20120608
  Serious: No
  Sender: FDA-Public Use
  Company Number: AE-2011-002260

PATIENT
  Age: 62 Year
  Sex: Male
  Weight: 92.5338 kg

DRUGS (5)
  1. RIBAVIRIN [Concomitant]
  2. PEGASYS [Concomitant]
  3. DESIPRAMINE HCL [Concomitant]
  4. INCIVEK [Suspect]
     Dosage: 2250 MG (750MG, 3 IN 1 D), ORAL
     Route: 048
     Dates: start: 20111008, end: 20111011
  5. TERAZOSIN HCL [Concomitant]

REACTIONS (3)
  - PRURITUS [None]
  - HEADACHE [None]
  - RASH PRURITIC [None]
